FAERS Safety Report 12397421 (Version 1)
Quarter: 2016Q2

REPORT INFORMATION
  Report Type: Spontaneous
  Country: US (occurrence: None)
  Receive Date: 20160523
  Receipt Date: 20160523
  Transmission Date: 20160815
  Serious: No
  Sender: FDA-Public Use
  Company Number: None

PATIENT
  Age: 69 Year
  Sex: Female

DRUGS (7)
  1. IBRANCE [Suspect]
     Active Substance: PALBOCICLIB
     Indication: BREAST CANCER
     Dosage: 125MG DAILY FOR 3 WEEKS PO
     Route: 048
     Dates: start: 20151231
  2. SYNTHROID [Concomitant]
     Active Substance: LEVOTHYROXINE SODIUM
  3. FASLODEX [Concomitant]
     Active Substance: FULVESTRANT
  4. AMOXICILLIN. [Concomitant]
     Active Substance: AMOXICILLIN
  5. BACLOFEN. [Concomitant]
     Active Substance: BACLOFEN
  6. ZOMETN [Concomitant]
  7. LEVOTHYROXIN [Concomitant]
     Active Substance: LEVOTHYROXINE

REACTIONS (2)
  - Blister [None]
  - Laboratory test abnormal [None]

NARRATIVE: CASE EVENT DATE: 201603
